FAERS Safety Report 7357061-X (Version None)
Quarter: 2011Q1

REPORT INFORMATION
  Report Type: 
  Country: None (occurrence: None)
  Receive Date: 20110308
  Receipt Date: 20110224
  Transmission Date: 20110831
  Serious: Yes (Hospitalization)
  Sender: FDA-Public Use
  Company Number: FRP10001187

PATIENT
  Age: 63 Year
  Sex: Female
  Weight: 70 kg

DRUGS (4)
  1. UVEDOSE (COLECALCIFEROL) [Concomitant]
  2. PRAVASTATIN SODIUM [Concomitant]
  3. LEVOTHYROX (LEVOTHYROXINE SODIUM) [Concomitant]
  4. ACTONEL [Suspect]
     Indication: OSTEOPOROSIS
     Dosage: 75 MG, 2 CD/MONTH, ORAL
     Route: 048
     Dates: start: 20100701, end: 20100701

REACTIONS (13)
  - EYE PAIN [None]
  - SWELLING FACE [None]
  - PYREXIA [None]
  - DYSPHAGIA [None]
  - BONE PAIN [None]
  - OCULAR HYPERAEMIA [None]
  - ARTHRALGIA [None]
  - C-REACTIVE PROTEIN INCREASED [None]
  - NAUSEA [None]
  - OPHTHALMOPLEGIA [None]
  - PAIN IN JAW [None]
  - MYALGIA [None]
  - WHITE BLOOD CELL COUNT INCREASED [None]
